FAERS Safety Report 15548975 (Version 1)
Quarter: 2018Q4

REPORT INFORMATION
  Report Type: Spontaneous
  Country: IN (occurrence: IN)
  Receive Date: 20181025
  Receipt Date: 20181025
  Transmission Date: 20190205
  Serious: Yes (Hospitalization, Other)
  Sender: FDA-Public Use
  Company Number: IN-LUPIN PHARMACEUTICALS INC.-2018-05696

PATIENT
  Age: 8 Year
  Weight: 25 kg

DRUGS (9)
  1. MIDAZOLAM [Concomitant]
     Active Substance: MIDAZOLAM HYDROCHLORIDE
     Indication: SEDATION
     Dosage: 1 MG, AT 1 HOUR
     Route: 042
  2. LACOSAMIDE. [Concomitant]
     Active Substance: LACOSAMIDE
     Indication: GENERALISED TONIC-CLONIC SEIZURE
     Dosage: 100 MG, BID
     Route: 065
  3. TOPIRAMATE TABLETS [Suspect]
     Active Substance: TOPIRAMATE
     Dosage: UNK (THROUGH A NASOGASTRIC TUBE)
     Route: 045
  4. FENTANYL. [Concomitant]
     Active Substance: FENTANYL
     Indication: SEDATION
     Dosage: 20 MCG, 1 HOUR
     Route: 042
  5. CLOBAZAM. [Concomitant]
     Active Substance: CLOBAZAM
     Indication: GENERALISED TONIC-CLONIC SEIZURE
     Dosage: 10 MG, QD
     Route: 065
  6. SODIUM CHLORIDE. [Concomitant]
     Active Substance: SODIUM CHLORIDE
     Indication: PRODUCT USED FOR UNKNOWN INDICATION
     Dosage: UNK (NORMAL SALINE 0.9%)
     Route: 042
  7. TOPIRAMATE TABLETS [Suspect]
     Active Substance: TOPIRAMATE
     Indication: GENERALISED TONIC-CLONIC SEIZURE
     Dosage: 100 MG, BID
     Route: 065
  8. LACOSAMIDE. [Concomitant]
     Active Substance: LACOSAMIDE
     Dosage: UNK (THROUGH A NASOGASTRIC TUBE)
     Route: 045
  9. CLOBAZAM. [Concomitant]
     Active Substance: CLOBAZAM
     Dosage: UNK (THROUGH A NASOGASTRIC TUBE)
     Route: 045

REACTIONS (1)
  - Metabolic acidosis [Recovered/Resolved]
